FAERS Safety Report 8485161-X (Version None)
Quarter: 2012Q3

REPORT INFORMATION
  Report Type: 
  Country: None (occurrence: None)
  Receive Date: 20120703
  Receipt Date: 20120702
  Transmission Date: 20120928
  Serious: Yes (Other)
  Sender: FDA-Public Use
  Company Number: US-PFIZER INC-2006028469

PATIENT
  Sex: Male
  Weight: 97.52 kg

DRUGS (4)
  1. CALAN [Suspect]
     Indication: ATRIAL TACHYCARDIA
  2. NEURONTIN [Concomitant]
     Route: 065
  3. CALAN [Suspect]
     Indication: HYPERTENSION
  4. CALAN [Suspect]
     Indication: HEART RATE IRREGULAR
     Route: 065
     Dates: start: 19860101

REACTIONS (1)
  - CROHN'S DISEASE [None]
